FAERS Safety Report 24975754 (Version 3)
Quarter: 2025Q2

REPORT INFORMATION
  Report Type: Spontaneous
  Country: GB (occurrence: GB)
  Receive Date: 20250217
  Receipt Date: 20250407
  Transmission Date: 20250716
  Serious: Yes (Other)
  Sender: ABBVIE
  Company Number: GB-ABBVIE-6131989

PATIENT
  Age: 36 Year
  Sex: Female
  Weight: 56.6 kg

DRUGS (1)
  1. RINVOQ [Suspect]
     Active Substance: UPADACITINIB
     Indication: Crohn^s disease
     Route: 048
     Dates: start: 20250101

REACTIONS (8)
  - Transient ischaemic attack [Unknown]
  - Cerebrovascular accident [Unknown]
  - Migraine with aura [Recovered/Resolved]
  - Hypoaesthesia [Unknown]
  - Hypoaesthesia oral [Unknown]
  - Thermal burn [Unknown]
  - Paraesthesia oral [Unknown]
  - Paraesthesia [Unknown]

NARRATIVE: CASE EVENT DATE: 20250111
